FAERS Safety Report 16481018 (Version 1)
Quarter: 2019Q2

REPORT INFORMATION
  Report Type: Spontaneous
  Country: CA (occurrence: CA)
  Receive Date: 20190626
  Receipt Date: 20190626
  Transmission Date: 20190711
  Serious: Yes (Other)
  Sender: FDA-Public Use
  Company Number: CA-SHIRE-CA201920266

PATIENT

DRUGS (2)
  1. GAMMAGARD LIQUID [Suspect]
     Active Substance: HUMAN IMMUNOGLOBULIN G
     Indication: KAWASAKI^S DISEASE
     Dosage: 20 GRAM
     Route: 042
  2. GAMMAGARD LIQUID [Suspect]
     Active Substance: HUMAN IMMUNOGLOBULIN G
     Dosage: 10 GRAM
     Route: 042

REACTIONS (9)
  - Haemolytic transfusion reaction [Unknown]
  - Neck pain [Unknown]
  - Back pain [Unknown]
  - Papilloedema [Unknown]
  - Headache [Unknown]
  - Jaundice [Unknown]
  - Intracranial pressure increased [Unknown]
  - Haemoglobin decreased [Unknown]
  - Meningitis aseptic [Unknown]
